FAERS Safety Report 9803394 (Version 1)
Quarter: 2014Q1

REPORT INFORMATION
  Report Type: Spontaneous
  Country: US (occurrence: None)
  Receive Date: 20140107
  Receipt Date: 20140107
  Transmission Date: 20141002
  Serious: Yes (Hospitalization)
  Sender: FDA-Public Use
  Company Number: None

PATIENT
  Age: 89 Year
  Sex: Female
  Weight: 70 kg

DRUGS (2)
  1. PIPERACILLIN/TAZOBACTAM 3.375GM PFIZER [Suspect]
     Indication: SEPTIC SHOCK
     Route: 042
     Dates: start: 20130410, end: 20130415
  2. PIPERACILLIN/TAZOBACTAM 3.375GM PFIZER [Suspect]
     Indication: INTESTINAL ISCHAEMIA
     Route: 042
     Dates: start: 20130410, end: 20130415

REACTIONS (1)
  - Thrombocytopenia [None]
